FAERS Safety Report 17293197 (Version 1)
Quarter: 2020Q1

REPORT INFORMATION
  Report Type: Spontaneous
  Country: US (occurrence: US)
  Receive Date: 20200121
  Receipt Date: 20200121
  Transmission Date: 20200409
  Serious: Yes (Other)
  Sender: FDA-Public Use
  Company Number: NVSC2020US011358

PATIENT
  Age: 72 Year
  Sex: Female

DRUGS (1)
  1. TRIAMCINOLONE ACETONIDE. [Suspect]
     Active Substance: TRIAMCINOLONE ACETONIDE
     Indication: RETINAL ARTERY OCCLUSION
     Dosage: UNK
     Route: 065

REACTIONS (2)
  - Retinal artery occlusion [Unknown]
  - Product use in unapproved indication [Unknown]
